FAERS Safety Report 12135696 (Version 1)
Quarter: 2016Q1

REPORT INFORMATION
  Report Type: Spontaneous
  Country: US (occurrence: US)
  Receive Date: 20160302
  Receipt Date: 20160302
  Transmission Date: 20160526
  Serious: No
  Sender: FDA-Public Use
  Company Number: US-JNJFOC-20160200048

PATIENT
  Sex: Female

DRUGS (1)
  1. ORTHO TRI CYCLEN LO [Suspect]
     Active Substance: ETHINYL ESTRADIOL\NORGESTIMATE
     Indication: PRODUCT USED FOR UNKNOWN INDICATION
     Route: 048

REACTIONS (6)
  - Drug dose omission [Unknown]
  - Menstruation delayed [Unknown]
  - Wrong technique in product usage process [Unknown]
  - Malaise [Unknown]
  - High risk sexual behaviour [Unknown]
  - Inappropriate schedule of drug administration [Unknown]
